FAERS Safety Report 6099726-6 (Version None)
Quarter: 2009Q1

REPORT INFORMATION
  Report Type: 
  Country: None (occurrence: None)
  Receive Date: 20090226
  Receipt Date: 20090211
  Transmission Date: 20090719
  Serious: Yes (Other)
  Sender: FDA-Public Use
  Company Number: 2009S1002403

PATIENT
  Age: 61 Year
  Sex: Male

DRUGS (1)
  1. METFORMIN (METFORMIN) (1000 MG) [Suspect]
     Dosage: 1000 MG; 3 TIMES A DAY; ORAL
     Route: 048
     Dates: start: 20080901

REACTIONS (1)
  - MYOCARDIAL INFARCTION [None]
